FAERS Safety Report 10651903 (Version 2)
Quarter: 2014Q4

REPORT INFORMATION
  Report Type: Report from Study
  Country: US (occurrence: US)
  Receive Date: 20141215
  Receipt Date: 20141215
  Transmission Date: 20150529
  Serious: Yes (Life-Threatening, Hospitalization)
  Sender: FDA-Public Use
  Company Number: US-AMGEN-2014-2656

PATIENT
  Age: 70 Year
  Sex: Male
  Weight: 88.6 kg

DRUGS (3)
  1. LENALIDOMIDE [Concomitant]
     Active Substance: LENALIDOMIDE
     Indication: PLASMA CELL MYELOMA
     Dosage: 15 MG, UNK
  2. DEXAMETHASONE. [Concomitant]
     Active Substance: DEXAMETHASONE
     Indication: PLASMA CELL MYELOMA
     Dosage: 40 MG, UNK
  3. CARFILZOMIB [Suspect]
     Active Substance: CARFILZOMIB
     Indication: PLASMA CELL MYELOMA
     Dosage: 77.4 MG, UNK
     Route: 042
     Dates: start: 20141002

REACTIONS (2)
  - Respiratory failure [Recovering/Resolving]
  - Sepsis [Recovering/Resolving]

NARRATIVE: CASE EVENT DATE: 20141202
